FAERS Safety Report 8124894-1 (Version None)
Quarter: 2012Q1

REPORT INFORMATION
  Report Type: 
  Country: None (occurrence: None)
  Receive Date: 20120209
  Receipt Date: 20120203
  Transmission Date: 20120608
  Serious: Yes (Hospitalization)
  Sender: FDA-Public Use
  Company Number: AT-PFIZER INC-2012024000

PATIENT
  Sex: Male

DRUGS (10)
  1. NEBIVOLOL [Suspect]
     Dosage: 5 MG, DAILY
     Dates: end: 20111213
  2. NOVALGIN [Concomitant]
     Dosage: 1000 MG, DAILY
     Dates: start: 20111209, end: 20111211
  3. UNASYN [Suspect]
     Indication: PNEUMONIA
     Dosage: 3 G, 3X/DAY
     Route: 042
     Dates: start: 20111209, end: 20111213
  4. CLONAZEPAM [Concomitant]
     Dosage: 7 MG, DAILY
     Dates: start: 20111209, end: 20111213
  5. LISINOPRIL [Concomitant]
     Dosage: 20 MG, DAILY
     Dates: end: 20111213
  6. DIPIDOLOR [Concomitant]
     Dosage: 3.75 MG, DAILY
     Dates: start: 20111212, end: 20111212
  7. CLOZAPINE [Suspect]
     Dosage: 250 MG, DAILY
     Dates: start: 20111209, end: 20111213
  8. LASIX [Concomitant]
     Dosage: 40 MG, DAILY
     Dates: start: 20111209, end: 20111213
  9. NORVASC [Concomitant]
     Dosage: 5 MG, DAILY
     Dates: end: 20111213
  10. PANTOPRAZOLE SODIUM [Concomitant]
     Dosage: 40 MG, DAILY
     Dates: end: 20111213

REACTIONS (1)
  - MEGACOLON [None]
